FAERS Safety Report 23910675 (Version 1)
Quarter: 2024Q2

REPORT INFORMATION
  Report Type: Spontaneous
  Country: US (occurrence: US)
  Receive Date: 20240528
  Receipt Date: 20240528
  Transmission Date: 20240716
  Serious: No
  Sender: FDA-Public Use
  Company Number: US-AVADEL CNS PHARMACEUTICALS, LLC-2024AVA00178

PATIENT
  Age: 34 Year
  Sex: Female

DRUGS (19)
  1. LUMRYZ [Suspect]
     Active Substance: SODIUM OXYBATE
     Indication: Narcolepsy
     Dosage: 9 G, ONCE NIGHTLY
     Route: 048
     Dates: start: 202308
  2. BUDESONIDE [Concomitant]
     Active Substance: BUDESONIDE
  3. CLARITIN [Concomitant]
     Active Substance: LORATADINE
  4. FLUTICASONE [Concomitant]
     Active Substance: FLUTICASONE
  5. GUANFACINE [Concomitant]
     Active Substance: GUANFACINE
  6. IBUPROFEN [Concomitant]
     Active Substance: IBUPROFEN
  7. LEVALBUTEROL [Concomitant]
     Active Substance: LEVALBUTEROL
  8. LEVOTHYROXINE [Concomitant]
     Active Substance: LEVOTHYROXINE\LEVOTHYROXINE SODIUM
  9. LIOTHYRONINE [Concomitant]
     Active Substance: LIOTHYRONINE
  10. METHYLPHENIDATE [Concomitant]
     Active Substance: METHYLPHENIDATE
  11. MODAFINIL [Concomitant]
     Active Substance: MODAFINIL
  12. MONTELUKAST [Concomitant]
     Active Substance: MONTELUKAST SODIUM
  13. ODACTRA [Concomitant]
     Active Substance: DERMATOPHAGOIDES FARINAE\DERMATOPHAGOIDES PTERONYSSINUS
  14. POLYETHYLENE GLYCOLS [Concomitant]
     Active Substance: POLYETHYLENE GLYCOLS
  15. PROPRANOLOL [Concomitant]
     Active Substance: PROPRANOLOL HYDROCHLORIDE
  16. SPIRONOLACTONE [Concomitant]
     Active Substance: SPIRONOLACTONE
  17. TRETINOIN [Concomitant]
     Active Substance: TRETINOIN
  18. VYVANSE [Concomitant]
     Active Substance: LISDEXAMFETAMINE DIMESYLATE
  19. WELLBUTRIN [Concomitant]
     Active Substance: BUPROPION HYDROCHLORIDE

REACTIONS (1)
  - Product dose omission issue [Unknown]

NARRATIVE: CASE EVENT DATE: 20240128
